FAERS Safety Report 13669829 (Version 1)
Quarter: 2017Q2

REPORT INFORMATION
  Report Type: Spontaneous
  Country: US (occurrence: US)
  Receive Date: 20170620
  Receipt Date: 20170620
  Transmission Date: 20170830
  Serious: No
  Sender: FDA-Public Use
  Company Number: US-BRAEBURN PHARMACEUTICALS, INC.-2017BBN00035

PATIENT
  Sex: Male
  Weight: 72.56 kg

DRUGS (2)
  1. SUBOXONE [Concomitant]
     Active Substance: BUPRENORPHINE HYDROCHLORIDE\NALOXONE HYDROCHLORIDE
  2. PROBUPHINE [Suspect]
     Active Substance: BUPRENORPHINE HYDROCHLORIDE
     Indication: DRUG USE DISORDER
     Dosage: 4 DOSAGE UNITS IMPLANTED IN THE LEFT ARM
     Dates: start: 2016

REACTIONS (4)
  - Feeling abnormal [Recovering/Resolving]
  - Incorrect drug administration duration [Not Recovered/Not Resolved]
  - Nervousness [Not Recovered/Not Resolved]
  - Drug withdrawal syndrome [Recovering/Resolving]

NARRATIVE: CASE EVENT DATE: 2017
